FAERS Safety Report 20038419 (Version 3)
Quarter: 2021Q4

REPORT INFORMATION
  Report Type: Report from Study
  Country: AR (occurrence: AR)
  Receive Date: 20211105
  Receipt Date: 20211207
  Transmission Date: 20220303
  Serious: Yes (Hospitalization)
  Sender: FDA-Public Use
  Company Number: AR-ABBVIE-21P-007-4130439-00

PATIENT
  Age: 58 Year
  Sex: Female
  Weight: 94.5 kg

DRUGS (21)
  1. UPADACITINIB [Suspect]
     Active Substance: UPADACITINIB
     Indication: Rheumatoid arthritis
     Route: 048
     Dates: start: 20161227, end: 20200824
  2. UPADACITINIB [Suspect]
     Active Substance: UPADACITINIB
     Indication: Rheumatoid arthritis
     Route: 048
     Dates: start: 20200825, end: 20211014
  3. DICLOFENAC [Concomitant]
     Active Substance: DICLOFENAC
     Indication: Sciatica
     Route: 048
     Dates: start: 20200825, end: 20200903
  4. DICLOFENAC [Concomitant]
     Active Substance: DICLOFENAC
     Indication: Spinal pain
     Route: 048
     Dates: start: 20200904, end: 20200921
  5. DICLOFENAC [Concomitant]
     Active Substance: DICLOFENAC
     Route: 048
     Dates: start: 20200922
  6. FEMOREL [Concomitant]
     Indication: Osteoporosis
     Route: 042
     Dates: start: 20210201
  7. FOLIC ACID [Concomitant]
     Active Substance: FOLIC ACID
     Indication: Adverse drug reaction
     Route: 048
     Dates: start: 201106
  8. IBANDRONATE SODIUM [Concomitant]
     Active Substance: IBANDRONATE SODIUM
     Indication: Osteoporosis
     Route: 048
     Dates: start: 20201027, end: 20201122
  9. IBANDRONATE SODIUM [Concomitant]
     Active Substance: IBANDRONATE SODIUM
     Route: 042
     Dates: start: 20201123
  10. IBUPROFEN [Concomitant]
     Active Substance: IBUPROFEN
     Indication: Rheumatoid arthritis
     Route: 048
     Dates: start: 2015
  11. IBUPROFEN [Concomitant]
     Active Substance: IBUPROFEN
     Indication: Femur fracture
     Route: 048
     Dates: start: 20170917, end: 20170922
  12. METHOTREXATE [Concomitant]
     Active Substance: METHOTREXATE
     Indication: Rheumatoid arthritis
     Route: 048
     Dates: start: 201106
  13. OMEPRAZOLE [Concomitant]
     Active Substance: OMEPRAZOLE
     Indication: Prophylaxis
     Route: 048
     Dates: start: 2015
  14. PREDNISONE [Concomitant]
     Active Substance: PREDNISONE
     Indication: Rheumatoid arthritis
     Route: 048
     Dates: start: 201106
  15. PRIDINOL [Concomitant]
     Active Substance: PRIDINOL
     Indication: Sciatica
     Route: 048
     Dates: start: 20200825, end: 20200903
  16. PRIDINOL [Concomitant]
     Active Substance: PRIDINOL
     Indication: Spinal pain
     Route: 048
     Dates: start: 20200904, end: 20200921
  17. PRIDINOL [Concomitant]
     Active Substance: PRIDINOL
     Route: 048
     Dates: start: 20200922
  18. TERBENOL DUO [Concomitant]
     Indication: Varicose vein
     Route: 048
     Dates: start: 2015, end: 201707
  19. TERBENOL DUO [Concomitant]
     Indication: Oedema peripheral
     Route: 048
     Dates: start: 20170822
  20. VITAMIN D3 [Concomitant]
     Active Substance: CHOLECALCIFEROL
     Indication: Osteoporosis
     Route: 048
     Dates: start: 20201027
  21. ENALAPRIL [Concomitant]
     Active Substance: ENALAPRIL
     Indication: Hypertension
     Route: 048
     Dates: start: 2015

REACTIONS (1)
  - Extrapulmonary tuberculosis [Not Recovered/Not Resolved]

NARRATIVE: CASE EVENT DATE: 20211015
